FAERS Safety Report 4325408-4 (Version None)
Quarter: 2004Q1

REPORT INFORMATION
  Report Type: 
  Country: None (occurrence: None)
  Receive Date: 20040324
  Receipt Date: 20040312
  Transmission Date: 20041129
  Serious: Yes (Hospitalization)
  Sender: FDA-Public Use
  Company Number: JP-JNJFOC-20040200325

PATIENT
  Age: 64 Year
  Sex: Female

DRUGS (16)
  1. REMICADE [Suspect]
     Indication: RHEUMATOID ARTHRITIS
     Dosage: 3 MG/KG, 1 IN 1 AS NECESSARY, INTRAVENOUS DRIP
     Route: 041
     Dates: start: 20030819, end: 20030819
  2. REMICADE [Suspect]
     Indication: RHEUMATOID ARTHRITIS
     Dosage: 3 MG/KG, 1 IN 1 AS NECESSARY, INTRAVENOUS DRIP
     Route: 041
     Dates: start: 20030902, end: 20030902
  3. REMICADE [Suspect]
     Indication: RHEUMATOID ARTHRITIS
     Dosage: 3 MG/KG, 1 IN 1 AS NECESSARY, INTRAVENOUS DRIP
     Route: 041
     Dates: start: 20030930, end: 20030930
  4. REMICADE [Suspect]
     Indication: RHEUMATOID ARTHRITIS
     Dosage: 3 MG/KG, 1 IN 1 AS NECESSARY, INTRAVENOUS DRIP
     Route: 041
     Dates: start: 20031119, end: 20031119
  5. RHEUMATREX [Concomitant]
  6. PREDNISOLONE (TABLETS) PREDNISOLONE [Concomitant]
  7. AZULFIDINE [Concomitant]
  8. LORFENAMIN (LOXOPROFEN SODIUM) [Concomitant]
  9. VOLTAREN [Concomitant]
  10. FOLIAMIN (FOLIC ACID) [Concomitant]
  11. SELBEX (TEPRENONE) [Concomitant]
  12. MAGNESIUM OXIDE (MAGNESIUM OXIDE) [Concomitant]
  13. ALTAT (ROXATIDINE ACETATE HYDROCHLORIDE) [Concomitant]
  14. FOSAMAX [Concomitant]
  15. LEVOFLOXACIN [Concomitant]
  16. MILTAX (KETOPROFEN) [Concomitant]

REACTIONS (5)
  - ANURIA [None]
  - ASCITES [None]
  - PERITONEAL TUBERCULOSIS [None]
  - PLEURAL EFFUSION [None]
  - TUBERCULOSIS [None]
